FAERS Safety Report 5570715-0 (Version None)
Quarter: 2007Q4

REPORT INFORMATION
  Report Type: 
  Country: None (occurrence: None)
  Receive Date: 20071221
  Receipt Date: 20071214
  Transmission Date: 20080405
  Serious: Yes (Other)
  Sender: FDA-Public Use
  Company Number: JP-AVENTIS-200713270JP

PATIENT

DRUGS (1)
  1. AMARYL [Suspect]

REACTIONS (1)
  - DEAFNESS [None]
